FAERS Safety Report 5069322-8 (Version None)
Quarter: 2006Q3

REPORT INFORMATION
  Report Type: 
  Country: None (occurrence: None)
  Receive Date: 20060714
  Receipt Date: 20060329
  Transmission Date: 20061208
  Serious: No
  Sender: FDA-Public Use
  Company Number: 2006SP001452

PATIENT
  Age: 47 Year
  Sex: Female
  Weight: 79.3795 kg

DRUGS (2)
  1. LUNESTA [Suspect]
     Indication: INSOMNIA
     Dosage: 3 MG;PRN;ORAL
     Route: 048
     Dates: start: 20050101, end: 20060101
  2. AMBIEN [Suspect]
     Indication: INSOMNIA
     Dosage: ORAL
     Route: 048

REACTIONS (6)
  - CONTUSION [None]
  - DYSGEUSIA [None]
  - FACIAL PAIN [None]
  - FALL [None]
  - MEMORY IMPAIRMENT [None]
  - MIDDLE INSOMNIA [None]
